FAERS Safety Report 5267361-5 (Version None)
Quarter: 2007Q1

REPORT INFORMATION
  Report Type: 
  Country: None (occurrence: None)
  Receive Date: 20070316
  Receipt Date: 20070306
  Transmission Date: 20070707
  Serious: Yes (Hospitalization)
  Sender: FDA-Public Use
  Company Number: JP-MERCK-0703USA02124

PATIENT
  Sex: Female

DRUGS (4)
  1. NOROXIN [Suspect]
     Indication: CHRONIC SINUSITIS
     Route: 048
     Dates: start: 20070226, end: 20070226
  2. CELESTONE [Concomitant]
     Route: 048
     Dates: start: 20070226, end: 20070227
  3. SOLFA [Concomitant]
     Route: 065
     Dates: start: 20070226, end: 20070226
  4. ZYRTEC [Concomitant]
     Route: 048
     Dates: start: 20070226, end: 20070226

REACTIONS (2)
  - DRUG ERUPTION [None]
  - PYREXIA [None]
